FAERS Safety Report 13903654 (Version 1)
Quarter: 2017Q3

REPORT INFORMATION
  Report Type: Spontaneous
  Country: US (occurrence: US)
  Receive Date: 20170824
  Receipt Date: 20170824
  Transmission Date: 20171127
  Serious: No
  Sender: FDA-Public Use
  Company Number: US-BION-006456

PATIENT
  Sex: Female

DRUGS (1)
  1. VALPROIC ACID BION PHARMA 250MG [Suspect]
     Active Substance: VALPROIC ACID
     Indication: MIGRAINE
     Dosage: VALPROIC ACID 250MG 2 PILLS A DAY SINCE A YEAR

REACTIONS (5)
  - Pain in extremity [Unknown]
  - Peripheral swelling [Unknown]
  - Product use in unapproved indication [Not Recovered/Not Resolved]
  - Hypoaesthesia [Unknown]
  - Arthralgia [None]
